FAERS Safety Report 8013270-8 (Version None)
Quarter: 2011Q4

REPORT INFORMATION
  Report Type: 
  Country: None (occurrence: None)
  Receive Date: 20111223
  Receipt Date: 20111216
  Transmission Date: 20120403
  Serious: Yes (Other)
  Sender: FDA-Public Use
  Company Number: TPA2011A08600

PATIENT
  Age: 60 Year
  Sex: Male

DRUGS (2)
  1. ACTOS [Suspect]
     Dosage: 30 MG, 1 IN 1 D, PER ORAL, 45 MG, 1 IN 1 D, PER ORAL
     Route: 048
     Dates: start: 20030101, end: 20050101
  2. ACTOS [Suspect]
     Dosage: 30 MG, 1 IN 1 D, PER ORAL, 45 MG, 1 IN 1 D, PER ORAL
     Route: 048
     Dates: start: 20050101

REACTIONS (2)
  - RENAL FAILURE CHRONIC [None]
  - BLADDER CANCER [None]
